FAERS Safety Report 13187930 (Version 1)
Quarter: 2017Q1

REPORT INFORMATION
  Report Type: Spontaneous
  Country: FR (occurrence: FR)
  Receive Date: 20170206
  Receipt Date: 20170206
  Transmission Date: 20170428
  Serious: Yes (Other)
  Sender: FDA-Public Use
  Company Number: FR-BRISTOL-MYERS SQUIBB COMPANY-BMS-2017-008094

PATIENT
  Age: 68 Year
  Sex: Male
  Weight: 70.6 kg

DRUGS (2)
  1. YERVOY [Suspect]
     Active Substance: IPILIMUMAB
     Indication: LUNG ADENOCARCINOMA
     Dosage: 5 MG/ML, UNK
     Route: 042
     Dates: start: 201609
  2. OPDIVO [Suspect]
     Active Substance: NIVOLUMAB
     Indication: LUNG ADENOCARCINOMA
     Dosage: 10 MG/ML, UNK
     Route: 042
     Dates: start: 201609

REACTIONS (3)
  - Eosinophilia [Unknown]
  - Sjogren^s syndrome [Not Recovered/Not Resolved]
  - Hyperlipasaemia [Not Recovered/Not Resolved]

NARRATIVE: CASE EVENT DATE: 201612
